FAERS Safety Report 20016728 (Version 1)
Quarter: 2021Q4

REPORT INFORMATION
  Report Type: Spontaneous
  Country: US (occurrence: None)
  Receive Date: 20211104
  Receipt Date: 20211104
  Transmission Date: 20220303
  Serious: No
  Sender: FDA-Public Use
  Company Number: None

PATIENT
  Age: 57 Year
  Sex: Female
  Weight: 60.78 kg

DRUGS (4)
  1. ORENCIA [Suspect]
     Active Substance: ABATACEPT
     Indication: Rheumatoid arthritis
     Dosage: FREQUENCY: ONCE A WEEK
     Route: 048
     Dates: start: 202109
  2. ORENCIA [Suspect]
     Active Substance: ABATACEPT
     Indication: Osteoporosis
  3. RASUVO [Suspect]
     Active Substance: METHOTREXATE SODIUM
     Indication: Rheumatoid arthritis
     Dates: start: 202101
  4. RASUVO [Suspect]
     Active Substance: METHOTREXATE SODIUM
     Indication: Osteoporosis

REACTIONS (1)
  - Pneumonia [None]
